FAERS Safety Report 18588489 (Version 2)
Quarter: 2020Q4

REPORT INFORMATION
  Report Type: Report from Study
  Country: None (occurrence: ES)
  Receive Date: 20201208
  Receipt Date: 20201216
  Transmission Date: 20210114
  Serious: Yes (Hospitalization, Other)
  Sender: FDA-Public Use
  Company Number: ES-ABBVIE-20K-144-3664476-00

PATIENT
  Age: 57 Year
  Sex: Male
  Weight: 64 kg

DRUGS (2)
  1. DUODOPA [Suspect]
     Active Substance: CARBIDOPA\LEVODOPA
     Dosage: CONTINUOUS INFUSION 2.5 ML
     Route: 050
     Dates: start: 2020
  2. DUODOPA [Suspect]
     Active Substance: CARBIDOPA\LEVODOPA
     Indication: PARKINSON^S DISEASE
     Route: 050
     Dates: start: 20190718, end: 2020

REACTIONS (19)
  - Intussusception [Recovered/Resolved]
  - Disorientation [Recovered/Resolved]
  - Anxiety [Not Recovered/Not Resolved]
  - Decubitus ulcer [Recovering/Resolving]
  - Device occlusion [Not Recovered/Not Resolved]
  - Abdominal discomfort [Not Recovered/Not Resolved]
  - Abdominal pain [Not Recovered/Not Resolved]
  - Duodenal ulcer [Recovered/Resolved]
  - Device dislocation [Not Recovered/Not Resolved]
  - Vomiting [Not Recovered/Not Resolved]
  - Agitation [Not Recovered/Not Resolved]
  - Stoma site pain [Recovered/Resolved]
  - Bezoar [Recovered/Resolved]
  - Neuropsychiatric symptoms [Recovered/Resolved]
  - Fibrin abnormal [Recovered/Resolved]
  - Hypophagia [Not Recovered/Not Resolved]
  - Jejunal ulcer [Not Recovered/Not Resolved]
  - Abdominal pain [Recovered/Resolved]
  - Drug ineffective [Unknown]

NARRATIVE: CASE EVENT DATE: 2020
